FAERS Safety Report 13438574 (Version 3)
Quarter: 2017Q2

REPORT INFORMATION
  Report Type: Spontaneous
  Country: US (occurrence: US)
  Receive Date: 20170413
  Receipt Date: 20170525
  Transmission Date: 20170830
  Serious: No
  Sender: FDA-Public Use
  Company Number: US-PFIZER INC-2670168

PATIENT
  Age: 68 Year
  Sex: Male

DRUGS (2)
  1. EPINEPHRINE/LIDOCAINE HYDROCHLORIDE [Suspect]
     Active Substance: EPINEPHRINE\LIDOCAINE HYDROCHLORIDE
     Indication: BIOPSY
     Dosage: NOT REPORTED, ONCE
     Route: 058
     Dates: start: 20141209, end: 20141209
  2. SODIUM BICARBONATE. [Suspect]
     Active Substance: SODIUM BICARBONATE
     Indication: BIOPSY
     Dosage: NOT REPORTED, ONCE
     Route: 058
     Dates: start: 20141209, end: 20141209

REACTIONS (2)
  - Injection site erythema [Recovered/Resolved]
  - Injection site pain [Recovered/Resolved]

NARRATIVE: CASE EVENT DATE: 20141209
